FAERS Safety Report 22252297 (Version 1)
Quarter: 2023Q2

REPORT INFORMATION
  Report Type: Other
  Country: EG (occurrence: EG)
  Receive Date: 20230426
  Receipt Date: 20230426
  Transmission Date: 20230721
  Serious: Yes (Other)
  Sender: FDA-Public Use
  Company Number: EG-Bion-011478

PATIENT

DRUGS (1)
  1. AZITHROMYCIN [Suspect]
     Active Substance: AZITHROMYCIN
     Indication: COVID-19
     Route: 048

REACTIONS (2)
  - Cardiotoxicity [Unknown]
  - Off label use [Unknown]
